FAERS Safety Report 9051510 (Version 1)
Quarter: 2013Q1

REPORT INFORMATION
  Report Type: Spontaneous
  Country: CO (occurrence: CO)
  Receive Date: 20130206
  Receipt Date: 20130206
  Transmission Date: 20140127
  Serious: Yes (Other)
  Sender: FDA-Public Use
  Company Number: CO-AMGEN-COLSP2013008089

PATIENT
  Age: 47 Year
  Sex: Female

DRUGS (5)
  1. ENBREL [Suspect]
     Indication: PSORIATIC ARTHROPATHY
     Dosage: 50 MG, WEEKLY
     Route: 058
     Dates: start: 200812, end: 2010
  2. ENBREL [Suspect]
     Dosage: 50MG FOR 3 MONTHS, 2X/WEEK AND 50MG FOR 3 MONTHS, 1X/WEEK
     Route: 058
     Dates: start: 201010
  3. CELEBREX [Concomitant]
     Indication: ARTHRITIS
     Dosage: UNK
     Route: 048
     Dates: start: 201206
  4. CELEBREX [Concomitant]
     Indication: JOINT SWELLING
  5. ADALIMUMAB [Concomitant]
     Dosage: UNK UNK, UNK

REACTIONS (4)
  - Thyroid disorder [Unknown]
  - Rash [Not Recovered/Not Resolved]
  - Rash pruritic [Not Recovered/Not Resolved]
  - Drug ineffective [Unknown]
